FAERS Safety Report 7319366-8 (Version None)
Quarter: 2011Q1

REPORT INFORMATION
  Report Type: 
  Country: None (occurrence: None)
  Receive Date: 20110228
  Receipt Date: 20100218
  Transmission Date: 20110831
  Serious: Yes (Hospitalization)
  Sender: FDA-Public Use
  Company Number: A0845221A

PATIENT
  Sex: Female

DRUGS (1)
  1. LAMICTAL [Suspect]
     Indication: BIPOLAR DISORDER
     Dosage: 25MG PER DAY
     Route: 048
     Dates: start: 20100101, end: 20100201

REACTIONS (5)
  - ERYTHEMA [None]
  - LOCAL SWELLING [None]
  - SWELLING [None]
  - RASH [None]
  - SWELLING FACE [None]
